FAERS Safety Report 5921986-X (Version None)
Quarter: 2008Q3

REPORT INFORMATION
  Report Type: 
  Country: None (occurrence: None)
  Receive Date: 20080909
  Receipt Date: 20080617
  Transmission Date: 20090109
  Serious: Yes (Hospitalization)
  Sender: FDA-Public Use
  Company Number: 163-20785-08061066

PATIENT
  Age: 68 Year
  Sex: Male

DRUGS (9)
  1. THALOMID [Suspect]
     Indication: MULTIPLE MYELOMA
     Dosage: 200 MG, QD, ORAL
     Route: 048
     Dates: start: 20080519, end: 20080524
  2. DEXAMETHASONE TAB [Concomitant]
  3. GINKGO BILOBA (GINKGO BILOBA) [Concomitant]
  4. HYDROCODONE (HYDROCODONE) [Concomitant]
  5. LISINOPRIL [Concomitant]
  6. CLARITIN [Concomitant]
  7. METOPROLOL TARTRATE [Concomitant]
  8. MIRALAX [Concomitant]
  9. ZANTAC 150 [Concomitant]

REACTIONS (4)
  - LIP SWELLING [None]
  - OEDEMA PERIPHERAL [None]
  - RASH [None]
  - URTICARIA [None]
